FAERS Safety Report 19549337 (Version 1)
Quarter: 2021Q3

REPORT INFORMATION
  Report Type: Spontaneous
  Country: US (occurrence: US)
  Receive Date: 20210715
  Receipt Date: 20210715
  Transmission Date: 20211014
  Serious: Yes (Life-Threatening, Hospitalization, Disabling)
  Sender: FDA-Public Use
  Company Number: None

PATIENT
  Age: 77 Year
  Sex: Female
  Weight: 69.85 kg

DRUGS (8)
  1. LEVOTHYROXINE. [Concomitant]
     Active Substance: LEVOTHYROXINE
  2. METOPROLOL TARTRATE. [Concomitant]
     Active Substance: METOPROLOL TARTRATE
  3. LACTULOSE (LAXATIVE) SYRUP [Concomitant]
  4. LETROZOLE. [Concomitant]
     Active Substance: LETROZOLE
  5. TYLENOL [Concomitant]
     Active Substance: ACETAMINOPHEN
  6. LOVASTATIN. [Suspect]
     Active Substance: LOVASTATIN
     Indication: BLOOD CHOLESTEROL INCREASED
     Dosage: ?          QUANTITY:1 DF DOSAGE FORM;
     Route: 048
  7. TUMS [Concomitant]
     Active Substance: CALCIUM CARBONATE
  8. ZOFRAN [Concomitant]
     Active Substance: ONDANSETRON HYDROCHLORIDE

REACTIONS (1)
  - Hepatic cancer [None]

NARRATIVE: CASE EVENT DATE: 20210612
